FAERS Safety Report 7597872 (Version 3)
Quarter: 2013Q3

REPORT INFORMATION
  Report Type: Spontaneous
  Country: None (occurrence: None)
  Receive Date: 20100908
  Receipt Date: 20130710
  Transmission Date: 20140515
  Serious: Yes (Other)
  Sender: FDA-Public Use
  Company Number: AUR-APL-2010-02165

PATIENT
  Age: 65 Year
  Sex: Male

DRUGS (5)
  1. CARVEDILOL [Suspect]
     Indication: HEART RATE INCREASED
     Dosage: 12.5MG,
  2. CLEXANE (HEPARIN-FRACTIONM SODIUM SALT) [Concomitant]
  3. XIPAMIDE [Concomitant]
  4. TORASEMIDE [Concomitant]
  5. PHENPROCOUMON [Concomitant]

REACTIONS (1)
  - Erectile dysfunction [None]
